FAERS Safety Report 4965406-0 (Version None)
Quarter: 2006Q1

REPORT INFORMATION
  Report Type: 
  Country: None (occurrence: None)
  Receive Date: 20060201
  Receipt Date: 20051206
  Transmission Date: 20060701
  Serious: No
  Sender: FDA-Public Use
  Company Number: 2005PV005546

PATIENT
  Age: 54 Year
  Sex: Female
  Weight: 104.3273 kg

DRUGS (3)
  1. BYETTA [Suspect]
     Indication: DIABETES MELLITUS NON-INSULIN-DEPENDENT
     Dosage: 5 MCG;BID;SC
     Route: 058
     Dates: start: 20051115
  2. DOCUSATE SODIUM [Concomitant]
  3. CORRECTOL [Concomitant]

REACTIONS (3)
  - CONDITION AGGRAVATED [None]
  - CONSTIPATION [None]
  - INFREQUENT BOWEL MOVEMENTS [None]
